FAERS Safety Report 6556925-4 (Version None)
Quarter: 2010Q1

REPORT INFORMATION
  Report Type: 
  Country: None (occurrence: None)
  Receive Date: 20100126
  Receipt Date: 20100111
  Transmission Date: 20100710
  Serious: Yes (Death, Other)
  Sender: FDA-Public Use
  Company Number: 2009003248

PATIENT
  Age: 47 Year
  Sex: Male

DRUGS (1)
  1. TARCEVA [Suspect]
     Indication: LUNG CANCER METASTATIC
     Dosage: ORAL
     Route: 048

REACTIONS (9)
  - ALOPECIA [None]
  - DIPLEGIA [None]
  - DISEASE PROGRESSION [None]
  - EUTHANASIA [None]
  - GAIT DISTURBANCE [None]
  - METASTASES TO SPINE [None]
  - NON-SMALL CELL LUNG CANCER [None]
  - PAIN IN EXTREMITY [None]
  - RASH [None]
